FAERS Safety Report 11321407 (Version 2)
Quarter: 2016Q2

REPORT INFORMATION
  Report Type: Report from Study
  Country: US (occurrence: US)
  Receive Date: 20150729
  Receipt Date: 20160414
  Transmission Date: 20160815
  Serious: Yes (Hospitalization, Other)
  Sender: FDA-Public Use
  Company Number: US-009507513-1504USA007878

PATIENT
  Age: 16 Year
  Sex: Male
  Weight: 76.9 kg

DRUGS (21)
  1. DAPTOMYCIN. [Suspect]
     Active Substance: DAPTOMYCIN
     Indication: STAPHYLOCOCCAL BACTERAEMIA
     Dosage: 7 MG/KG, QD; INFUSED OVER 30+/-3 MINUTES
     Route: 042
     Dates: start: 20130726, end: 20130801
  2. CUBICIN [Concomitant]
     Active Substance: DAPTOMYCIN
     Indication: OFF LABEL USE
  3. ADDERALL [Concomitant]
     Active Substance: AMPHETAMINE ASPARTATE\AMPHETAMINE SULFATE\DEXTROAMPHETAMINE SACCHARATE\DEXTROAMPHETAMINE SULFATE
     Indication: BIPOLAR DISORDER
     Dosage: 200 MG, HS
     Route: 048
     Dates: start: 20130220, end: 20130723
  4. POTASSIUM CHLORIDE. [Concomitant]
     Active Substance: POTASSIUM CHLORIDE
     Indication: PROPHYLAXIS
     Dosage: 40 MEQ, BID
     Route: 048
     Dates: start: 20130728, end: 20130729
  5. MORPHINE [Concomitant]
     Active Substance: MORPHINE
     Indication: ANAESTHESIA
     Dosage: 4 MG, QD
     Route: 048
     Dates: start: 20130725, end: 20130725
  6. MIRALAX [Concomitant]
     Active Substance: POLYETHYLENE GLYCOL 3350
     Indication: CONSTIPATION
     Dosage: 17 G, ONCE DAILY
     Route: 048
     Dates: start: 20130725, end: 20130801
  7. 5% DEXTROSE NAK 2 [Concomitant]
     Indication: FLUID REPLACEMENT
     Dosage: 500 ML, ONCE DAILY
     Route: 042
     Dates: start: 20130725, end: 20130725
  8. CUBICIN [Concomitant]
     Active Substance: DAPTOMYCIN
     Indication: OSTEOMYELITIS
     Dosage: 6.5 MG/KG, QD
     Route: 042
     Dates: start: 20130802
  9. FENTANYL. [Concomitant]
     Active Substance: FENTANYL
     Indication: ANAESTHESIA
     Dosage: 100 MCG, ONCE DAILY
     Route: 042
     Dates: start: 20130725, end: 20130725
  10. FENTANYL. [Concomitant]
     Active Substance: FENTANYL
     Dosage: 25MCG, ONCE DAILY
     Route: 042
     Dates: start: 20130725, end: 20130725
  11. QUETIAPINE FUMARATE. [Concomitant]
     Active Substance: QUETIAPINE FUMARATE
     Indication: AGITATION
     Dosage: 100 MG, HS
     Route: 048
     Dates: start: 201302, end: 20130728
  12. QUETIAPINE FUMARATE. [Concomitant]
     Active Substance: QUETIAPINE FUMARATE
     Dosage: 150 MG, HS
     Route: 048
     Dates: start: 20130728
  13. BACTRIM DS [Concomitant]
     Active Substance: SULFAMETHOXAZOLE\TRIMETHOPRIM
     Indication: PYREXIA
     Dosage: 160 MG, BID
     Route: 048
     Dates: start: 20130724, end: 20130724
  14. BACTRIM DS [Concomitant]
     Active Substance: SULFAMETHOXAZOLE\TRIMETHOPRIM
     Indication: WOUND SECRETION
  15. SENNA [Concomitant]
     Active Substance: SENNA LEAF\SENNOSIDES\SENNOSIDES A AND B
     Indication: CONSTIPATION
     Dosage: 1 TABLET (2 IN 1 D)
     Route: 048
     Dates: start: 20130727, end: 20130801
  16. ACETAMINOPHEN. [Concomitant]
     Active Substance: ACETAMINOPHEN
     Indication: PAIN
     Dosage: 650 MG, PRN
     Route: 048
     Dates: start: 20130724
  17. QUETIAPINE FUMARATE. [Concomitant]
     Active Substance: QUETIAPINE FUMARATE
     Dosage: 50 MG, EVERY A.M
     Route: 048
     Dates: start: 20130728
  18. ACETAMINOPHEN (+) OXYCODONE HYDROCHLORIDE [Concomitant]
     Active Substance: ACETAMINOPHEN\OXYCODONE HYDROCHLORIDE
     Indication: PAIN
     Dosage: 10 MG, PRN
     Route: 048
     Dates: start: 20130724, end: 20130801
  19. CUBICIN [Concomitant]
     Active Substance: DAPTOMYCIN
     Indication: WOUND DRAINAGE
     Dosage: 500 MG, QD
     Route: 042
     Dates: start: 20130802, end: 20130816
  20. IBUPROFEN. [Concomitant]
     Active Substance: IBUPROFEN
     Indication: PAIN
     Dosage: 800 MG, Q4H
     Route: 048
     Dates: start: 20130720
  21. DEXMEDETOMIDINE. [Concomitant]
     Active Substance: DEXMEDETOMIDINE
     Indication: ANAESTHESIA
     Dosage: 12 MCG,ONCE DAILY
     Route: 048
     Dates: start: 20130725, end: 20130725

REACTIONS (1)
  - Bacteraemia [Recovered/Resolved]

NARRATIVE: CASE EVENT DATE: 20130815
